FAERS Safety Report 24607982 (Version 1)
Quarter: 2024Q4

REPORT INFORMATION
  Report Type: Spontaneous
  Country: US (occurrence: US)
  Receive Date: 20241112
  Receipt Date: 20241112
  Transmission Date: 20250115
  Serious: Yes (Other)
  Sender: ALCON
  Company Number: US-ALCON LABORATORIES-ALC2024US004960

PATIENT
  Age: 42 Year
  Sex: Male

DRUGS (3)
  1. PROPARACAINE HYDROCHLORIDE [Suspect]
     Active Substance: PROPARACAINE HYDROCHLORIDE
     Indication: Eye pain
     Dosage: UNK
     Route: 047
  2. PROPARACAINE HYDROCHLORIDE [Suspect]
     Active Substance: PROPARACAINE HYDROCHLORIDE
     Indication: Photophobia
  3. PROPARACAINE HYDROCHLORIDE [Suspect]
     Active Substance: PROPARACAINE HYDROCHLORIDE
     Indication: Vision blurred

REACTIONS (3)
  - Persistent corneal epithelial defect [Recovered/Resolved]
  - Corneal abrasion [Recovered/Resolved]
  - Condition aggravated [Recovered/Resolved]
